FAERS Safety Report 4410633-4 (Version None)
Quarter: 2004Q3

REPORT INFORMATION
  Report Type: 
  Country: None (occurrence: None)
  Receive Date: 20040726
  Receipt Date: 20040708
  Transmission Date: 20050211
  Serious: Yes (Hospitalization, Other)
  Sender: FDA-Public Use
  Company Number: 189785

PATIENT
  Age: 49 Year
  Sex: Female
  Weight: 53.5244 kg

DRUGS (13)
  1. AVONEX [Suspect]
     Indication: MULTIPLE SCLEROSIS
     Dosage: 30 MCG QW IM
     Route: 030
     Dates: start: 19950101, end: 20030801
  2. AVONEX [Suspect]
     Indication: MULTIPLE SCLEROSIS
     Dosage: 30 MCG QW IM
     Route: 030
     Dates: start: 20030801, end: 20040101
  3. OXYCONTIN [Concomitant]
  4. ASPIRIN [Concomitant]
  5. BELLERGAL [Concomitant]
  6. KADIAN [Concomitant]
  7. SOMA [Concomitant]
  8. NORCO [Concomitant]
  9. MAXZIDE [Concomitant]
  10. ESTRACE ^ROBERTS^ [Concomitant]
  11. COZAAR [Concomitant]
  12. TIAZAC [Concomitant]
  13. SONATA [Concomitant]

REACTIONS (28)
  - ABDOMINAL HERNIA [None]
  - AMNESIA [None]
  - ANGIOPATHY [None]
  - ARRHYTHMIA [None]
  - BLOOD GLUCOSE DECREASED [None]
  - BLOOD TRIGLYCERIDES INCREASED [None]
  - CARCINOEMBRYONIC ANTIGEN INCREASED [None]
  - CARDIAC ARREST [None]
  - CEREBROVASCULAR ACCIDENT [None]
  - CONDITION AGGRAVATED [None]
  - CONVULSION [None]
  - DEPRESSION [None]
  - FATIGUE [None]
  - GRAND MAL CONVULSION [None]
  - HEADACHE [None]
  - HYPERCHOLESTEROLAEMIA [None]
  - HYPERTENSION [None]
  - HYPOKALAEMIA [None]
  - HYPONATRAEMIA [None]
  - INFLUENZA LIKE ILLNESS [None]
  - INJECTION SITE EXTRAVASATION [None]
  - INSOMNIA [None]
  - INTERVERTEBRAL DISC DEGENERATION [None]
  - MULTIPLE SCLEROSIS [None]
  - PAIN [None]
  - SKIN ULCER [None]
  - TREATMENT NONCOMPLIANCE [None]
  - VISUAL ACUITY REDUCED [None]
